FAERS Safety Report 23976820 (Version 1)
Quarter: 2024Q2

REPORT INFORMATION
  Report Type: Spontaneous
  Country: US (occurrence: US)
  Receive Date: 20240614
  Receipt Date: 20240614
  Transmission Date: 20240716
  Serious: Yes (Other)
  Sender: FDA-Public Use
  Company Number: US-JNJFOC-20240607840

PATIENT
  Sex: Female

DRUGS (3)
  1. TREMFYA [Suspect]
     Active Substance: GUSELKUMAB
     Indication: Psoriatic arthropathy
     Route: 065
     Dates: start: 202306
  2. TREMFYA [Suspect]
     Active Substance: GUSELKUMAB
  3. CALAMINE [Concomitant]
     Active Substance: CALAMINE\FERRIC OXIDE RED\ZINC OXIDE
     Route: 003

REACTIONS (5)
  - Meniscus injury [Unknown]
  - Drug delivery system malfunction [Unknown]
  - Drug ineffective [Unknown]
  - Off label use [Unknown]
  - Gait inability [Unknown]
